FAERS Safety Report 9117022 (Version 1)
Quarter: 2013Q1

REPORT INFORMATION
  Report Type: Spontaneous
  Country: US (occurrence: US)
  Receive Date: 20130225
  Receipt Date: 20130225
  Transmission Date: 20140127
  Serious: No
  Sender: FDA-Public Use
  Company Number: US-PFIZER INC-2013067723

PATIENT
  Age: 31 Year
  Sex: Female

DRUGS (4)
  1. LYRICA [Suspect]
     Indication: NEURALGIA
     Dosage: 150 MG, 1X/DAY
     Dates: start: 2009
  2. LYRICA [Suspect]
     Indication: SPINAL CORD INJURY
  3. IBUPROFEN [Concomitant]
     Indication: PAIN
     Dosage: 800 MG, AS NEEDED
  4. PERCOCET [Concomitant]
     Indication: PAIN
     Dosage: 5/325 MG, AS NEEDED

REACTIONS (1)
  - Fatigue [Recovered/Resolved]
